FAERS Safety Report 25795956 (Version 1)
Quarter: 2025Q3

REPORT INFORMATION
  Report Type: Spontaneous
  Country: US (occurrence: None)
  Receive Date: 20250911
  Receipt Date: 20250911
  Transmission Date: 20251021
  Serious: No
  Sender: FDA-CTU
  Company Number: None

PATIENT
  Age: 78 Year
  Sex: Male
  Weight: 73.35 kg

DRUGS (15)
  1. EZETIMIBE [Suspect]
     Active Substance: EZETIMIBE
     Indication: Immunisation
     Dosage: FREQUENCY : DAILY;?
     Route: 048
  2. PRAVASTATIN [Concomitant]
     Active Substance: PRAVASTATIN
  3. FENOFIBRATE [Concomitant]
     Active Substance: FENOFIBRATE
  4. OMEPRAZOLE [Concomitant]
     Active Substance: OMEPRAZOLE
  5. XANAX [Concomitant]
     Active Substance: ALPRAZOLAM
  6. BUPROPION [Concomitant]
     Active Substance: BUPROPION
  7. CLOPIDOGREL [Concomitant]
     Active Substance: CLOPIDOGREL BISULFATE
  8. DONEPEZIL [Concomitant]
     Active Substance: DONEPEZIL
  9. METOPROLOL [Concomitant]
     Active Substance: METOPROLOL
  10. MONTELUKAST [Concomitant]
     Active Substance: MONTELUKAST
  11. TAMSULOSIN [Concomitant]
     Active Substance: TAMSULOSIN
  12. FINASTERIDE [Concomitant]
     Active Substance: FINASTERIDE
  13. CLARITIN [Concomitant]
     Active Substance: LORATADINE
  14. ASPIRIN [Concomitant]
     Active Substance: ASPIRIN
  15. VITAMINS [Concomitant]
     Active Substance: VITAMINS

REACTIONS (4)
  - Abdominal pain upper [None]
  - Chromaturia [None]
  - Urine odour abnormal [None]
  - Dizziness [None]

NARRATIVE: CASE EVENT DATE: 20250905
